FAERS Safety Report 9193086 (Version 2)
Quarter: 2013Q2

REPORT INFORMATION
  Report Type: Spontaneous
  Country: US (occurrence: US)
  Receive Date: 20130327
  Receipt Date: 20130426
  Transmission Date: 20140414
  Serious: Yes (Hospitalization, Other)
  Sender: FDA-Public Use
  Company Number: US-ASTELLAS-2013US003227

PATIENT
  Age: 88 Year
  Sex: Male
  Weight: 58 kg

DRUGS (11)
  1. XTANDI [Suspect]
     Indication: PROSTATE CANCER METASTATIC
     Dosage: 160 MG, UID/QD
     Route: 048
     Dates: start: 201303
  2. AMIODARONE [Concomitant]
     Indication: PRODUCT USED FOR UNKNOWN INDICATION
     Dosage: UNK
     Route: 065
  3. METOPROLOL [Concomitant]
     Indication: PRODUCT USED FOR UNKNOWN INDICATION
     Dosage: 50 MG, UID/QD
     Route: 048
  4. LEVOTHYROXINE [Concomitant]
     Indication: PRODUCT USED FOR UNKNOWN INDICATION
     Dosage: 0.1 MG, UID/QD
     Route: 048
  5. LUPRON [Concomitant]
     Indication: PRODUCT USED FOR UNKNOWN INDICATION
     Dosage: 30 MG, Q 4 MONTHS
     Route: 065
     Dates: start: 1997
  6. DECADRON                           /00016001/ [Concomitant]
     Indication: PROSTATE CANCER METASTATIC
     Dosage: 0.5 MG, UID/QD
     Route: 048
     Dates: start: 201303
  7. RITALIN [Concomitant]
     Indication: ASTHENIA
     Dosage: 5 MG, UID/QD (TAKE 1/2 TAB BEFORE 6PM)
  8. COLACE [Concomitant]
     Indication: CONSTIPATION
     Dosage: 100 MG, BID, PRN
     Route: 048
  9. PROBIOTIC                          /06395501/ [Concomitant]
     Indication: PROBIOTIC THERAPY
     Dosage: 1 DF, UID/QD
     Route: 048
  10. ARTIFICIAL TEARS                   /90046201/ [Concomitant]
     Indication: EYE LUBRICATION THERAPY
     Dosage: 1 DROPS EACH EYE, QID, PRN
     Route: 047
  11. ENSURE                             /07421001/ [Concomitant]
     Indication: SUPPLEMENTATION THERAPY
     Dosage: UNK
     Route: 065

REACTIONS (12)
  - Pancytopenia [Unknown]
  - Sinus disorder [Unknown]
  - Haemorrhoids [Unknown]
  - Haematochezia [Recovered/Resolved]
  - Pleural effusion [Unknown]
  - Colon adenoma [Unknown]
  - Haematuria [Unknown]
  - Metastases to bladder [Unknown]
  - Urinary tract infection [Unknown]
  - Malnutrition [Unknown]
  - Decreased appetite [Not Recovered/Not Resolved]
  - Fatigue [Not Recovered/Not Resolved]
